FAERS Safety Report 13611442 (Version 1)
Quarter: 2017Q2

REPORT INFORMATION
  Report Type: Spontaneous
  Country: US (occurrence: US)
  Receive Date: 20170605
  Receipt Date: 20170605
  Transmission Date: 20170830
  Serious: No
  Sender: FDA-Public Use
  Company Number: US-PFIZER INC-2017241605

PATIENT
  Sex: Female

DRUGS (6)
  1. DRONEDARONE [Suspect]
     Active Substance: DRONEDARONE
     Dosage: UNK
  2. MORPHINE SULFATE. [Suspect]
     Active Substance: MORPHINE SULFATE
     Dosage: UNK
  3. PROCAINE HYDROCHLORIDE [Suspect]
     Active Substance: PROCAINE HYDROCHLORIDE
     Dosage: UNK
  4. AMOXICILLIN CLAVULANIC ACID [Suspect]
     Active Substance: AMOXICILLIN\CLAVULANIC ACID
     Dosage: UNK
  5. CODEINE [Suspect]
     Active Substance: CODEINE
     Dosage: UNK
  6. BUTALBITAL AND ACETAMINOPHEN [Suspect]
     Active Substance: ACETAMINOPHEN\BUTALBITAL
     Dosage: UNK

REACTIONS (1)
  - Drug hypersensitivity [Unknown]
